FAERS Safety Report 4780581-9 (Version None)
Quarter: 2005Q3

REPORT INFORMATION
  Report Type: 
  Country: None (occurrence: None)
  Receive Date: 20050926
  Receipt Date: 20050909
  Transmission Date: 20060218
  Serious: Yes (Other)
  Sender: FDA-Public Use
  Company Number: 2005BI014126

PATIENT
  Age: 36 Year
  Sex: Female

DRUGS (16)
  1. AVONEX [Suspect]
     Indication: MULTIPLE SCLEROSIS
     Dosage: 30 UG; QW; IM
     Route: 030
     Dates: start: 19971001
  2. AVONEX [Suspect]
     Indication: MULTIPLE SCLEROSIS
     Dosage: 30 UG; QW; IM
     Route: 030
     Dates: start: 20030101, end: 20030101
  3. AVONEX [Suspect]
     Indication: MULTIPLE SCLEROSIS
     Dosage: 30 UG; QW; IM
     Route: 030
  4. SYNTHROID [Concomitant]
  5. LIPITOR [Concomitant]
  6. ZOLOFT [Concomitant]
  7. METHOCARBAMOL [Concomitant]
  8. SINGULAIR [Concomitant]
  9. ALBUTEROL [Concomitant]
  10. AMANTADINE [Concomitant]
  11. TEMAZEPAM [Concomitant]
  12. PEPCID [Concomitant]
  13. SOLU-MEDROL [Concomitant]
  14. PREDNISONE [Concomitant]
  15. VICODIN [Concomitant]
  16. CELEBREX [Concomitant]

REACTIONS (2)
  - AUTOIMMUNE THYROIDITIS [None]
  - THYROID GLAND CANCER [None]
